FAERS Safety Report 5155304-4 (Version None)
Quarter: 2006Q4

REPORT INFORMATION
  Report Type: 
  Country: None (occurrence: None)
  Receive Date: 20061121
  Receipt Date: 20061116
  Transmission Date: 20070319
  Serious: Yes (Hospitalization)
  Sender: FDA-Public Use
  Company Number: 2006AP05448

PATIENT
  Age: 68 Year
  Sex: Male
  Weight: 45 kg

DRUGS (2)
  1. MERONEM [Suspect]
     Indication: PNEUMONIA
     Dosage: 500 MG ADMINISTERED 4 TIMES, FREQUENCY NOT DESCRIBED
     Route: 042
     Dates: start: 20061108, end: 20061108
  2. MERONEM [Suspect]
     Indication: CHRONIC OBSTRUCTIVE PULMONARY DISEASE
     Dosage: 500 MG ADMINISTERED 4 TIMES, FREQUENCY NOT DESCRIBED
     Route: 042
     Dates: start: 20061108, end: 20061108

REACTIONS (3)
  - BRONCHOSPASM [None]
  - DYSPNOEA [None]
  - HYPOTENSION [None]
